FAERS Safety Report 5477296-0 (Version None)
Quarter: 2007Q4

REPORT INFORMATION
  Report Type: 
  Country: None (occurrence: None)
  Receive Date: 20071004
  Receipt Date: 20070926
  Transmission Date: 20080405
  Serious: Yes (Hospitalization)
  Sender: FDA-Public Use
  Company Number: US-SHR-US-2006-036660

PATIENT
  Age: 47 Year
  Sex: Female

DRUGS (12)
  1. BETASERON [Suspect]
     Dosage: 8 MIU, EVERY 2D
     Route: 058
     Dates: start: 20070221, end: 20070801
  2. BETASERON [Suspect]
     Dosage: 8 MIU, EVERY 2D
     Route: 058
     Dates: start: 20060620, end: 20060824
  3. BETASERON [Suspect]
     Dosage: 8 MIU, EVERY 2D
     Route: 058
     Dates: start: 20060914, end: 20061123
  4. PLAVIX [Concomitant]
     Dosage: UNK, UNK
     Dates: start: 20020101
  5. LABETALOL [Concomitant]
  6. HYDRALAZINE HCL [Concomitant]
  7. LASIX [Concomitant]
  8. HYDROCHLOROTHIAZIDE [Concomitant]
  9. TOPAMAX [Concomitant]
  10. ASPIRIN [Concomitant]
  11. SEROQUEL [Concomitant]
  12. IRON [Concomitant]

REACTIONS (12)
  - CEREBROVASCULAR ACCIDENT [None]
  - CHEST PAIN [None]
  - DIZZINESS [None]
  - EPISTAXIS [None]
  - HAEMORRHAGIC STROKE [None]
  - HYPERTENSION [None]
  - LOSS OF CONSCIOUSNESS [None]
  - MALAISE [None]
  - MULTIPLE SCLEROSIS [None]
  - MYOCARDIAL INFARCTION [None]
  - THROMBOSIS [None]
  - TRANSIENT ISCHAEMIC ATTACK [None]
